FAERS Safety Report 7187056-0 (Version None)
Quarter: 2010Q4

REPORT INFORMATION
  Report Type: 
  Country: None (occurrence: None)
  Receive Date: 20101222
  Receipt Date: 20101214
  Transmission Date: 20110411
  Serious: Yes (Hospitalization, Other)
  Sender: FDA-Public Use
  Company Number: US-PFIZER INC-2010172805

PATIENT
  Sex: Female

DRUGS (3)
  1. EFFEXOR XR [Suspect]
     Indication: DEPRESSION
     Dosage: 300 MG, 1X/DAY
  2. VENLAFAXINE [Suspect]
     Indication: DEPRESSION
     Dosage: UNK
  3. PROZAC [Suspect]
     Indication: DEPRESSION

REACTIONS (5)
  - DRUG INEFFECTIVE [None]
  - GASTRIC BYPASS [None]
  - INTENTIONAL OVERDOSE [None]
  - MALABSORPTION [None]
  - MALAISE [None]
